FAERS Safety Report 12831039 (Version 2)
Quarter: 2017Q1

REPORT INFORMATION
  Report Type: Spontaneous
  Country: US (occurrence: US)
  Receive Date: 20161007
  Receipt Date: 20170111
  Transmission Date: 20170428
  Serious: No
  Sender: FDA-Public Use
  Company Number: US-ARBOR PHARMACEUTICALS, LLC-US-2016ARB000274

PATIENT

DRUGS (2)
  1. LAMICTAL [Concomitant]
     Active Substance: LAMOTRIGINE
     Indication: PRODUCT USED FOR UNKNOWN INDICATION
     Dosage: UNK
  2. EVEKEO [Suspect]
     Active Substance: AMPHETAMINE SULFATE
     Indication: DECREASED APPETITE
     Dosage: 2 TABLETS IN AM, 1 1 TABLET IN AFTERNOON
     Route: 048
     Dates: start: 2015, end: 2016

REACTIONS (2)
  - Tachyphrenia [Unknown]
  - Communication disorder [Unknown]
